FAERS Safety Report 6434448-0 (Version None)
Quarter: 2009Q4

REPORT INFORMATION
  Report Type: 
  Country: None (occurrence: None)
  Receive Date: 20091110
  Receipt Date: 20091029
  Transmission Date: 20100525
  Serious: Yes (Hospitalization, Other)
  Sender: FDA-Public Use
  Company Number: DE-PFIZER INC-2009278644

PATIENT
  Age: 72 Year
  Sex: Male

DRUGS (2)
  1. LYRICA [Suspect]
     Indication: NEURILEMMOMA
     Dosage: 50 MG, 2X/DAY
     Route: 048
     Dates: start: 20090123, end: 20090126
  2. LYRICA [Suspect]
     Indication: NEURALGIA

REACTIONS (4)
  - ALTERED STATE OF CONSCIOUSNESS [None]
  - AMNESIA [None]
  - DELIRIUM [None]
  - HALLUCINATION [None]
